FAERS Safety Report 8755825 (Version 2)
Quarter: 2012Q4

REPORT INFORMATION
  Report Type: 
  Country: US (occurrence: US)
  Receive Date: 20120827
  Receipt Date: 20120921
  Transmission Date: 20130627
  Serious: No
  Sender: FDA-Public Use
  Company Number: US-PFIZER INC-2012208823

PATIENT
  Age: 72 Year
  Sex: Female
  Weight: 100 kg

DRUGS (3)
  1. ATORVASTATIN CALCIUM [Suspect]
     Indication: BLOOD CHOLESTEROL ABNORMAL
     Dosage: 20 mg, daily
     Route: 048
     Dates: start: 201207, end: 201207
  2. BENADRYL [Suspect]
     Indication: PRURITUS GENERALISED
     Dosage: 50 mg, 2x/day
     Dates: start: 201207, end: 201207
  3. LISINOPRIL [Concomitant]
     Indication: HYPERTENSION
     Dosage: 5 mg, daily

REACTIONS (2)
  - Pruritus generalised [Recovered/Resolved]
  - Drug ineffective [Unknown]
